FAERS Safety Report 8502827-3 (Version None)
Quarter: 2012Q3

REPORT INFORMATION
  Report Type: 
  Country: None (occurrence: None)
  Receive Date: 20120711
  Receipt Date: 20120709
  Transmission Date: 20120928
  Serious: Yes (Hospitalization)
  Sender: FDA-Public Use
  Company Number: US-PFIZER INC-2012164405

PATIENT
  Sex: Male
  Weight: 83 kg

DRUGS (15)
  1. RANITIDINE [Concomitant]
     Dosage: 300 MG, 1X/DAY (300 MG,1 IN 1 D)
     Route: 048
  2. CRESTOR [Concomitant]
     Dosage: 20 MG, 1X/DAY (20 MG,1 IN 1 D)
     Route: 048
     Dates: end: 20120101
  3. ALBUTEROL [Concomitant]
     Dosage: UNK, AS NEEDED
  4. XOPENEX [Concomitant]
     Dosage: 1.25 MG, 1X/DAY (1.25 MG,1 IN 1 D)
  5. BROVANA [Concomitant]
     Dosage: 15 MCG/2ML TWICE DAILY AS NEEDED
  6. MEDROL [Suspect]
     Indication: CHRONIC OBSTRUCTIVE PULMONARY DISEASE
     Dosage: UNK
     Dates: start: 20120418, end: 20120101
  7. DALIRESP [Suspect]
     Indication: CHRONIC OBSTRUCTIVE PULMONARY DISEASE
     Dosage: 500 UG, DAILY
     Route: 048
     Dates: start: 20120418, end: 20120502
  8. SYMBICORT [Concomitant]
     Dosage: 160/4.5 MG, 2X/DAY
  9. PLAVIX [Concomitant]
     Dosage: 75 MG, 3 IN 1 WK (MONDAY, WEDNESDAY, FRIDAY)
     Route: 048
  10. AMLODIPINE [Concomitant]
     Indication: HYPERTENSION
     Dosage: 5 MG, 2X/DAY
     Route: 048
  11. CLONIDINE [Concomitant]
     Indication: HYPERTENSION
     Dosage: 0.2 MG, 2X/DAY (0.2 MG, 2 IN 1 D)
     Route: 048
  12. BUDESONIDE [Concomitant]
     Dosage: 0.5/2MM, TWICE DAILY AS NEEDED
  13. ASPIRIN [Concomitant]
     Dosage: 81 MG, 1X/DAY (1 IN 1 D)
     Route: 048
  14. LISINOPRIL [Concomitant]
     Indication: HYPERTENSION
     Dosage: 5 MG, 2X/DAY
     Route: 048
  15. FEXOFENADINE [Concomitant]
     Dosage: 60 MG, 2X/DAY
     Route: 048

REACTIONS (1)
  - GUILLAIN-BARRE SYNDROME [None]
